FAERS Safety Report 18498520 (Version 4)
Quarter: 2023Q2

REPORT INFORMATION
  Report Type: Report from Study
  Country: US (occurrence: US)
  Receive Date: 20201112
  Receipt Date: 20230606
  Transmission Date: 20230722
  Serious: Yes (Other)
  Sender: FDA-Public Use
  Company Number: NVSC2019US087215

PATIENT
  Age: 13 Month
  Sex: Male
  Weight: 9.6 kg

DRUGS (4)
  1. ZOLGENSMA [Suspect]
     Active Substance: ONASEMNOGENE ABEPARVOVEC-XIOI
     Indication: Spinal muscular atrophy
     Dosage: 49.5 ML, ONCE/SINGLE (1.1 X E14 VG/KG)
     Route: 042
     Dates: start: 20191108
  2. PEPCID [Concomitant]
     Active Substance: FAMOTIDINE
     Indication: Product used for unknown indication
     Dosage: 4 MG, BID
     Route: 065
  3. CETIRIZINE [Concomitant]
     Active Substance: CETIRIZINE HYDROCHLORIDE
     Indication: Product used for unknown indication
     Dosage: 2.5 MG, QD
     Route: 065
  4. PULMICORT TURBUHALER [Concomitant]
     Active Substance: BUDESONIDE
     Indication: Product used for unknown indication
     Dosage: 0.5 MG, BID
     Route: 065

REACTIONS (17)
  - Thrombocytopenia [Recovered/Resolved]
  - Bradycardia [Recovered/Resolved]
  - Bradycardia [Not Recovered/Not Resolved]
  - Otitis media acute [Recovered/Resolved]
  - Otitis media acute [Recovered/Resolved]
  - Excessive granulation tissue [Recovered/Resolved]
  - Tracheobronchitis [Not Recovered/Not Resolved]
  - Pyrexia [Recovered/Resolved]
  - COVID-19 [Recovered/Resolved]
  - Pyrexia [Recovered/Resolved]
  - Pyrexia [Recovered/Resolved]
  - Rhinitis allergic [Not Recovered/Not Resolved]
  - Increased viscosity of upper respiratory secretion [Recovered/Resolved]
  - Diarrhoea [Recovered/Resolved]
  - Protein deficiency [Not Recovered/Not Resolved]
  - Constipation [Not Recovered/Not Resolved]
  - Vomiting [Recovered/Resolved]

NARRATIVE: CASE EVENT DATE: 20190101
